FAERS Safety Report 4609505-1 (Version None)
Quarter: 2005Q1

REPORT INFORMATION
  Report Type: 
  Country: None (occurrence: None)
  Receive Date: 20050314
  Receipt Date: 20050314
  Transmission Date: 20050727
  Serious: Yes (Hospitalization)
  Sender: FDA-Public Use
  Company Number: None

PATIENT
  Age: 67 Year
  Sex: Male

DRUGS (6)
  1. LISINOPRIL [Suspect]
     Indication: HYPERTENSION
     Dosage: 10 MG QD
     Dates: start: 20041101
  2. ATENOLOL [Suspect]
     Indication: HYPERTENSION
     Dosage: 50 MG QD
     Dates: start: 20041001
  3. SPIRONOLACTONE [Suspect]
     Dosage: 25MG QD
     Dates: start: 20041101
  4. METOPROLOL TARTRATE [Concomitant]
  5. DONEPOZIL [Concomitant]
  6. LORATADINE [Concomitant]

REACTIONS (1)
  - HYPOTENSION [None]
